FAERS Safety Report 6782811-0 (Version None)
Quarter: 2010Q2

REPORT INFORMATION
  Report Type: 
  Country: None (occurrence: None)
  Receive Date: 20100616
  Receipt Date: 20100602
  Transmission Date: 20101027
  Serious: Yes (Other)
  Sender: FDA-Public Use
  Company Number: 1000014437

PATIENT
  Age: 40 Year
  Sex: Female

DRUGS (18)
  1. ESCITALOPRAM OXALATE [Suspect]
     Indication: BIPOLAR I DISORDER
     Dosage: 10 MG (10MG, 1 IN 1D, ORAL)
     Route: 048
     Dates: start: 20090213, end: 20090228
  2. LAROXYL (SOLUTION) [Suspect]
     Indication: BIPOLAR I DISORDER
     Dosage: ONE BOTTLE (ONCE) ORAL
     Route: 048
     Dates: start: 20081116, end: 20081116
  3. LEXOMIL (TABLETS) [Suspect]
     Indication: BIPOLAR I DISORDER
     Dosage: 48 MG (ONCE), ORAL
     Route: 048
     Dates: start: 20081116, end: 20081116
  4. RIVOTRIL [Suspect]
     Indication: BIPOLAR I DISORDER
     Dosage: 2 DOSAGE FORMS (2 DOSAGE FORMS, 1 IN 1 D), ORAL
     Route: 048
     Dates: end: 20081001
  5. RIVOTRIL [Suspect]
     Indication: BIPOLAR I DISORDER
     Dosage: 2 DOSAGE FORMS (2 DOSAGE FORMS, 1 IN 1 D), ORAL
     Route: 048
     Dates: start: 20090115
  6. LYSANXIA [Suspect]
     Indication: BIPOLAR I DISORDER
     Dosage: ORAL
     Route: 048
     Dates: end: 20081001
  7. TOPIRAMATE [Suspect]
     Indication: BIPOLAR I DISORDER
     Dosage: ORAL
     Route: 048
     Dates: end: 20081001
  8. ZYPREXA [Suspect]
     Indication: BIPOLAR I DISORDER
     Dosage: 5MG (5MG, 1 IN 1D), ORAL
     Route: 048
     Dates: start: 20081001, end: 20081125
  9. IMOVANE (TABLETS) [Suspect]
     Indication: BIPOLAR I DISORDER
     Dosage: 7.5 MG (7.5 MG, 1 IN 1 D) ORAL
     Route: 048
     Dates: start: 20081118, end: 20090201
  10. LARGACTIL (DROPS (FOR ORAL USE)) [Suspect]
     Indication: BIPOLAR I DISORDER
     Dosage: 60 GTT (GTT, 1 IN 1 D), ORAL
     Route: 048
     Dates: start: 20081118
  11. SERESTA (TABLETS) [Suspect]
     Indication: BIPOLAR I DISORDER
     Dosage: 20MG (20MG, 1 IN 1D), ORAL
     Route: 048
     Dates: start: 20081118
  12. SPASFON LYOC [Suspect]
     Dosage: 160 MG (160 MG, 1 IN 1D) ORAL
     Route: 048
     Dates: start: 20081118
  13. EFFEXOR [Suspect]
     Indication: BIPOLAR I DISORDER
     Dosage: 37.5 MG, (37.5 MG,  1 IN 1D) ORAL
     Route: 048
     Dates: start: 20081120
  14. STILNOX (TABLETS) [Suspect]
     Indication: BIPOLAR I DISORDER
     Dosage: 10MG (10MG, 1 IN 1D) ORAL
     Route: 048
     Dates: start: 20081126, end: 20081201
  15. THERALENE (DROPS (FOR ORAL USE)) [Suspect]
     Indication: BIPOLAR I DISORDER
     Dosage: 100 GTT (100 GTT, 1 IN 1
     Dates: start: 20090115
  16. AKINETON (TABLETS) [Suspect]
     Indication: BIPOLAR I DISORDER
     Dosage: 8MG (8MG, 1 IN 1 D), ORAL
     Route: 048
     Dates: start: 20090213
  17. NEULEPTIL (DROPS (FOR ORAL USE)) [Suspect]
     Indication: BIPOLAR I DISORDER
     Dosage: 50GTT (50GTT, 1 IN 1D), ORAL
     Route: 048
     Dates: start: 20090225
  18. CLAMOXYL (TABLETS) [Suspect]
     Indication: BIPOLAR I DISORDER
     Dosage: 3GM (3GM, 1 IN 1D) ORAL
     Route: 048
     Dates: start: 20090225

REACTIONS (11)
  - ABORTION INDUCED [None]
  - BLOOD PRESSURE INCREASED [None]
  - DRUG EXPOSURE DURING PREGNANCY [None]
  - FALL [None]
  - FATIGUE [None]
  - HELLP SYNDROME [None]
  - INTRA-UTERINE DEATH [None]
  - OVERDOSE [None]
  - PREGNANCY [None]
  - SLEEP DISORDER [None]
  - SOMNOLENCE [None]
